FAERS Safety Report 5337259-2 (Version None)
Quarter: 2007Q2

REPORT INFORMATION
  Report Type: 
  Country: None (occurrence: None)
  Receive Date: 20070529
  Receipt Date: 20070518
  Transmission Date: 20071010
  Serious: Yes (Life-Threatening, Hospitalization, Disabling)
  Sender: FDA-Public Use
  Company Number: B0466162A

PATIENT
  Age: 60 Year
  Sex: Male
  Weight: 50 kg

DRUGS (5)
  1. ZEFIX [Suspect]
     Indication: HEPATITIS B
     Dosage: 100MG PER DAY
     Route: 048
     Dates: start: 20070220, end: 20070411
  2. URSO 250 [Suspect]
     Indication: BLOOD BILIRUBIN INCREASED
     Dosage: 100MG SEE DOSAGE TEXT
     Route: 048
     Dates: start: 20070402, end: 20070411
  3. UNKNOWN MEDICATION [Concomitant]
     Route: 048
     Dates: start: 20070220
  4. GASTROM [Concomitant]
     Route: 048
     Dates: end: 20070412
  5. FRANDOL [Concomitant]
     Indication: HYPERTENSION
     Dosage: 40MG PER DAY
     Route: 061
     Dates: start: 20070310

REACTIONS (3)
  - AGRANULOCYTOSIS [None]
  - GRANULOCYTOPENIA [None]
  - WHITE BLOOD CELL COUNT DECREASED [None]
